FAERS Safety Report 17920677 (Version 1)
Quarter: 2020Q2

REPORT INFORMATION
  Report Type: Spontaneous
  Country: JP (occurrence: JP)
  Receive Date: 20200621
  Receipt Date: 20200621
  Transmission Date: 20200714
  Serious: Yes (Death, Other)
  Sender: FDA-Public Use
  Company Number: JP-AMGEN-JPNSP2020098461

PATIENT
  Age: 57 Year
  Sex: Female

DRUGS (1)
  1. VECTIBIX [Suspect]
     Active Substance: PANITUMUMAB
     Indication: COLON CANCER
     Dosage: UNK
     Route: 042

REACTIONS (4)
  - Ascites [Fatal]
  - Rash [Fatal]
  - Colon cancer [Fatal]
  - Disease progression [Fatal]

NARRATIVE: CASE EVENT DATE: 2019
